FAERS Safety Report 8277171-2 (Version None)
Quarter: 2012Q2

REPORT INFORMATION
  Report Type: 
  Country: None (occurrence: None)
  Receive Date: 20120412
  Receipt Date: 20120404
  Transmission Date: 20120825
  Serious: Yes (Other)
  Sender: FDA-Public Use
  Company Number: US-BAYER-2012-033507

PATIENT
  Age: 44 Year
  Sex: Female
  Weight: 113 kg

DRUGS (1)
  1. ASPIRIN [Suspect]
     Indication: ISCHAEMIC HEART DISEASE PROPHYLAXIS
     Dosage: 1 U, QD
     Route: 048
     Dates: start: 20120201, end: 20120404

REACTIONS (3)
  - OEDEMA MOUTH [None]
  - NERVOUSNESS [None]
  - TREMOR [None]
